FAERS Safety Report 16706530 (Version 1)
Quarter: 2019Q3

REPORT INFORMATION
  Report Type: Spontaneous
  Country: US (occurrence: US)
  Receive Date: 20190815
  Receipt Date: 20190815
  Transmission Date: 20191004
  Serious: No
  Sender: FDA-Public Use
  Company Number: US-PACIRA-201500027

PATIENT
  Age: 79 Year

DRUGS (6)
  1. EXPAREL [Suspect]
     Active Substance: BUPIVACAINE
     Indication: POSTOPERATIVE ANALGESIA
     Dosage: 266 MG EXPAAREL 20 ML
     Dates: start: 20150708, end: 20150708
  2. MARCAINE [Suspect]
     Active Substance: BUPIVACAINE HYDROCHLORIDE
     Indication: POSTOPERATIVE ANALGESIA
     Dosage: 0.50 %, MARCAINE 30ML
     Dates: start: 20150706, end: 20150706
  3. MARCAINE [Suspect]
     Active Substance: BUPIVACAINE HYDROCHLORIDE
     Indication: POSTOPERATIVE ANALGESIA
     Dosage: 0.25 % MARCAINE 60ML
     Dates: start: 20150708, end: 20150708
  4. SALINE [Concomitant]
     Active Substance: SODIUM CHLORIDE
     Indication: POSTOPERATIVE ANALGESIA
     Dosage: 0.9% NORMAL SALINE 20 ML
     Dates: start: 20150708, end: 20150708
  5. SALINE [Concomitant]
     Active Substance: SODIUM CHLORIDE
     Indication: POSTOPERATIVE ANALGESIA
     Dosage: 0.9 % NORMAL SALINE 50 ML
     Dates: start: 20150706, end: 20150706
  6. EXPAREL [Suspect]
     Active Substance: BUPIVACAINE
     Indication: POSTOPERATIVE ANALGESIA
     Dosage: 266 MG EXPAREL 20 ML
     Dates: start: 20150706, end: 20150706

REACTIONS (2)
  - Labelled drug-drug interaction medication error [Unknown]
  - Inappropriate schedule of product administration [Unknown]
